FAERS Safety Report 14169550 (Version 1)
Quarter: 2017Q4

REPORT INFORMATION
  Report Type: Spontaneous
  Country: US (occurrence: US)
  Receive Date: 20171107
  Receipt Date: 20171107
  Transmission Date: 20180321
  Serious: Yes (Life-Threatening, Other)
  Sender: FDA-Public Use
  Company Number: None

PATIENT
  Age: 42 Year
  Sex: Female
  Weight: 66.51 kg

DRUGS (22)
  1. VITAMIN C [Concomitant]
     Active Substance: ASCORBIC ACID
  2. METHYLPHENIDATE. [Concomitant]
     Active Substance: METHYLPHENIDATE
  3. LEVOTHYROXINE. [Concomitant]
     Active Substance: LEVOTHYROXINE
  4. MONTELUKAST [Concomitant]
     Active Substance: MONTELUKAST SODIUM
  5. PROGESTERONE. [Concomitant]
     Active Substance: PROGESTERONE
  6. CLONAZEPAM. [Concomitant]
     Active Substance: CLONAZEPAM
  7. METHACABAMOL [Concomitant]
  8. LACTAID [Concomitant]
     Active Substance: LACTASE
  9. CENTRUM MULTIVITAMIN [Concomitant]
  10. ZYRTEC [Concomitant]
     Active Substance: CETIRIZINE HYDROCHLORIDE
  11. BIOFREEZE [Concomitant]
     Active Substance: MENTHOL
  12. LAMOTRIGINE. [Suspect]
     Active Substance: LAMOTRIGINE
     Indication: BIPOLAR DISORDER
     Dosage: ?          QUANTITY:1 TABLET(S);?EVERY 12 HOURS ORAL
     Route: 048
     Dates: start: 20171103, end: 20171106
  13. DICLOFENAC SODIUM. [Concomitant]
     Active Substance: DICLOFENAC SODIUM
  14. EVAMIST [Concomitant]
     Active Substance: ESTRADIOL
  15. DOCUSATE SODIUM. [Concomitant]
     Active Substance: DOCUSATE SODIUM
  16. QUETIAPINE. [Concomitant]
     Active Substance: QUETIAPINE
  17. VITAMIN D3 [Concomitant]
     Active Substance: CHOLECALCIFEROL
  18. PRAVASTATIN. [Concomitant]
     Active Substance: PRAVASTATIN
  19. ESCITALOPRAM [Concomitant]
     Active Substance: ESCITALOPRAM OXALATE
  20. ALLERGY SHOTS [Concomitant]
     Active Substance: UNSPECIFIED INGREDIENT
  21. BIOTIN [Concomitant]
     Active Substance: BIOTIN
  22. FIBER GUMMIES [Concomitant]

REACTIONS (19)
  - Fatigue [None]
  - Hallucination, auditory [None]
  - Chest discomfort [None]
  - Fall [None]
  - Panic attack [None]
  - Asthenia [None]
  - Vision blurred [None]
  - Cognitive disorder [None]
  - Confusional state [None]
  - Chest pain [None]
  - Arthralgia [None]
  - Balance disorder [None]
  - Musculoskeletal stiffness [None]
  - Emotional disorder [None]
  - Anxiety [None]
  - Depression [None]
  - Dyspnoea [None]
  - Myalgia [None]
  - Rhinorrhoea [None]

NARRATIVE: CASE EVENT DATE: 20171106
